FAERS Safety Report 24857393 (Version 2)
Quarter: 2025Q1

REPORT INFORMATION
  Report Type: Spontaneous
  Country: US (occurrence: US)
  Receive Date: 20250117
  Receipt Date: 20250228
  Transmission Date: 20250409
  Serious: No
  Sender: TEIKOKU
  Company Number: US-TPU-TPU-2025-00012

PATIENT
  Sex: Female

DRUGS (1)
  1. LIDOCAINE PATCH [Suspect]
     Active Substance: LIDOCAINE

REACTIONS (4)
  - Drug ineffective for unapproved indication [Unknown]
  - Blood pressure increased [Unknown]
  - Gait disturbance [Unknown]
  - Arthritis [Unknown]
